FAERS Safety Report 10200227 (Version 1)
Quarter: 2014Q2

REPORT INFORMATION
  Report Type: Spontaneous
  Country: CH (occurrence: CH)
  Receive Date: 20140527
  Receipt Date: 20140527
  Transmission Date: 20141212
  Serious: Yes (Hospitalization, Other)
  Sender: FDA-Public Use
  Company Number: PHHY2014CH063665

PATIENT
  Age: 24 Year
  Sex: Female

DRUGS (1)
  1. MYCOPHENOLATE MOFETIL [Suspect]
     Dosage: 10000 MG (179.2 MG/KG)
     Route: 048

REACTIONS (4)
  - Suicide attempt [Unknown]
  - Abdominal pain [Unknown]
  - Nausea [Unknown]
  - Intentional overdose [Unknown]
